FAERS Safety Report 15456736 (Version 1)
Quarter: 2018Q3

REPORT INFORMATION
  Report Type: Spontaneous
  Country: US (occurrence: US)
  Receive Date: 20180928
  Receipt Date: 20180928
  Transmission Date: 20181014
  Serious: No
  Sender: FDA-Public Use
  Company Number: None

PATIENT
  Age: 38 Year
  Sex: Male

DRUGS (1)
  1. ENBREL [Suspect]
     Active Substance: ETANERCEPT
     Indication: PSORIASIS
     Dosage: OTHER
     Route: 058
     Dates: start: 201806, end: 201809

REACTIONS (8)
  - Hyperhidrosis [None]
  - Nausea [None]
  - Throat tightness [None]
  - Musculoskeletal stiffness [None]
  - Feeling hot [None]
  - Joint stiffness [None]
  - Psoriasis [None]
  - Pain [None]

NARRATIVE: CASE EVENT DATE: 20180205
